FAERS Safety Report 8579376-X (Version None)
Quarter: 2012Q3

REPORT INFORMATION
  Report Type: 
  Country: None (occurrence: None)
  Receive Date: 20120808
  Receipt Date: 20120802
  Transmission Date: 20120928
  Serious: Yes (Other)
  Sender: FDA-Public Use
  Company Number: US-PFIZER INC-2012130266

PATIENT
  Age: 25 Year
  Sex: Female

DRUGS (8)
  1. SEROQUEL [Concomitant]
     Dosage: UNK
  2. OXYCODONE [Concomitant]
     Dosage: UNK
  3. CYMBALTA [Concomitant]
     Dosage: UNK
  4. CLARITIN [Concomitant]
     Dosage: UNK
  5. XANAX [Suspect]
     Dosage: UNK
  6. LYRICA [Suspect]
     Dosage: 150 MG, 1X/DAY (1 PO QHS)
     Route: 048
     Dates: start: 20120518
  7. ELAVIL [Concomitant]
     Dosage: UNK
  8. MICROGESTIN 1.5/30 [Concomitant]
     Dosage: UNK

REACTIONS (9)
  - DEPRESSION [None]
  - FATIGUE [None]
  - COMPLEX REGIONAL PAIN SYNDROME [None]
  - ACTIVITIES OF DAILY LIVING IMPAIRED [None]
  - ANXIETY [None]
  - FIBROMYALGIA [None]
  - FEELING ABNORMAL [None]
  - IMPAIRED WORK ABILITY [None]
  - MALAISE [None]
